FAERS Safety Report 6109480-7 (Version None)
Quarter: 2009Q1

REPORT INFORMATION
  Report Type: 
  Country: None (occurrence: None)
  Receive Date: 20090310
  Receipt Date: 20090303
  Transmission Date: 20090719
  Serious: Yes (Hospitalization)
  Sender: FDA-Public Use
  Company Number: US-BAYER-200910485BCC

PATIENT
  Age: 69 Year
  Sex: Male

DRUGS (3)
  1. ASPIRIN [Suspect]
     Indication: DRUG USE FOR UNKNOWN INDICATION
     Dates: start: 20030101, end: 20090112
  2. PLAVIX [Suspect]
     Indication: TRANSIENT ISCHAEMIC ATTACK
     Route: 048
     Dates: start: 20090113, end: 20090201
  3. SIMVASTATIN [Concomitant]
     Indication: BLOOD CHOLESTEROL INCREASED

REACTIONS (8)
  - ASTHENIA [None]
  - DIARRHOEA [None]
  - DIVERTICULUM [None]
  - HAEMATOCHEZIA [None]
  - MELAENA [None]
  - MYOCARDIAL INFARCTION [None]
  - PALLOR [None]
  - VASCULAR RUPTURE [None]
